FAERS Safety Report 11334285 (Version 2)
Quarter: 2015Q3

REPORT INFORMATION
  Report Type: Spontaneous
  Country: GB (occurrence: GB)
  Receive Date: 20150803
  Receipt Date: 20150824
  Transmission Date: 20151125
  Serious: Yes (Other)
  Sender: FDA-Public Use
  Company Number: GB-IMPAX LABORATORIES, INC-2015-IPXL-00800

PATIENT
  Age: 30 Year
  Sex: Male

DRUGS (7)
  1. CLONIDINE HYDROCHLORIDE. [Suspect]
     Active Substance: CLONIDINE HYDROCHLORIDE
     Dosage: 100 MG PER DOSE
     Route: 048
  2. CLONIDINE HYDROCHLORIDE. [Suspect]
     Active Substance: CLONIDINE HYDROCHLORIDE
     Dosage: WEANED TO A RATE OF 90 MG/H
     Route: 065
  3. ALFENTANIL. [Concomitant]
     Active Substance: ALFENTANIL
     Indication: SEDATION
     Dosage: UNK
     Route: 065
  4. CLONIDINE HYDROCHLORIDE. [Suspect]
     Active Substance: CLONIDINE HYDROCHLORIDE
     Dosage: 600 MG, 4 /DAY (WITH OVERLAP OF APPROXIMATELY 2 HOUR)
     Route: 048
  5. CLONIDINE HYDROCHLORIDE. [Suspect]
     Active Substance: CLONIDINE HYDROCHLORIDE
     Dosage: INFUSION
     Route: 065
  6. CLONIDINE HYDROCHLORIDE. [Suspect]
     Active Substance: CLONIDINE HYDROCHLORIDE
     Indication: SEDATION
     Dosage: 120 MG/H TO NIL OVER 10 HOUR
     Route: 065
  7. PROPOFOL. [Concomitant]
     Active Substance: PROPOFOL
     Indication: SEDATION
     Dosage: UNK
     Route: 065

REACTIONS (8)
  - Hyperhidrosis [Recovered/Resolved]
  - Acute pulmonary oedema [Recovered/Resolved]
  - Pyrexia [Recovered/Resolved]
  - Lacrimation increased [Recovered/Resolved]
  - Hypertension [Recovered/Resolved]
  - Tachycardia [Recovered/Resolved]
  - Withdrawal syndrome [Recovered/Resolved]
  - Acute respiratory distress syndrome [Recovered/Resolved]
